FAERS Safety Report 13197891 (Version 1)
Quarter: 2017Q1

REPORT INFORMATION
  Report Type: Spontaneous
  Country: US (occurrence: US)
  Receive Date: 20170207
  Receipt Date: 20170207
  Transmission Date: 20170428
  Serious: No
  Sender: FDA-Public Use
  Company Number: None

PATIENT
  Sex: Male

DRUGS (1)
  1. COPAXONE [Suspect]
     Active Substance: GLATIRAMER ACETATE
     Indication: MULTIPLE SCLEROSIS
     Dosage: 40 MG/ML TIW SQ
     Route: 058
     Dates: start: 20161223

REACTIONS (6)
  - Incontinence [None]
  - Gait disturbance [None]
  - Chest discomfort [None]
  - Emotional disorder [None]
  - Depression [None]
  - Confusional state [None]
